FAERS Safety Report 4911839-8 (Version None)
Quarter: 2006Q1

REPORT INFORMATION
  Report Type: 
  Country: None (occurrence: None)
  Receive Date: 20060215
  Receipt Date: 20020710
  Transmission Date: 20060701
  Serious: Yes (Other)
  Sender: FDA-Public Use
  Company Number: SE-AMGEN-02070202

PATIENT
  Sex: Female

DRUGS (2)
  1. ENBREL [Suspect]
     Indication: JUVENILE ARTHRITIS
     Route: 058
     Dates: start: 19990719, end: 20010401
  2. ENBREL [Suspect]

REACTIONS (9)
  - AGRANULOCYTOSIS [None]
  - BLOOD CREATININE INCREASED [None]
  - CARNITINE DECREASED [None]
  - HEPATIC ENZYME INCREASED [None]
  - HYPERTHYROIDISM [None]
  - LIVER DISORDER [None]
  - PANCYTOPENIA [None]
  - SEPSIS [None]
  - TACHYCARDIA [None]
